FAERS Safety Report 5612167-8 (Version None)
Quarter: 2008Q1

REPORT INFORMATION
  Report Type: 
  Country: None (occurrence: None)
  Receive Date: 20080128
  Receipt Date: 20070206
  Transmission Date: 20080703
  Serious: No
  Sender: FDA-Public Use
  Company Number: NL01PV07.01821

PATIENT
  Age: 20 Year
  Sex: Female

DRUGS (3)
  1. PAROXETINE [Suspect]
     Indication: MAJOR DEPRESSION
     Dosage: 10 MG; 20 MG
  2. PAROXETINE [Suspect]
     Indication: MAJOR DEPRESSION
     Dosage: 10 MG; 20 MG
  3. TRIAMCINOLONE ACETONIDE [Concomitant]

REACTIONS (3)
  - HAIR GROWTH ABNORMAL [None]
  - HYPOMANIA [None]
  - THERAPEUTIC RESPONSE UNEXPECTED [None]
